FAERS Safety Report 4584099-8 (Version None)
Quarter: 2005Q1

REPORT INFORMATION
  Report Type: 
  Country: None (occurrence: None)
  Receive Date: 20050211
  Receipt Date: 20050107
  Transmission Date: 20050727
  Serious: No
  Sender: FDA-Public Use
  Company Number: 9732

PATIENT
  Sex: Male

DRUGS (1)
  1. ATRACURIUM BESYLATE [Suspect]
     Dosage: IV
     Route: 042
     Dates: start: 20041231

REACTIONS (2)
  - PHARMACEUTICAL PRODUCT COMPLAINT [None]
  - THERAPEUTIC PRODUCT INEFFECTIVE [None]
